FAERS Safety Report 6317725-3 (Version None)
Quarter: 2009Q3

REPORT INFORMATION
  Report Type: 
  Country: None (occurrence: None)
  Receive Date: 20090821
  Receipt Date: 20090814
  Transmission Date: 20100115
  Serious: Yes (Other)
  Sender: FDA-Public Use
  Company Number: PHHY2009BR34418

PATIENT
  Age: 52 Year
  Sex: Male
  Weight: 100 kg

DRUGS (1)
  1. DIOVAN [Suspect]
     Indication: HYPERTENSION
     Dosage: 1 DF (320 MG) PER DAY
     Route: 048
     Dates: start: 20070101

REACTIONS (1)
  - HAND FRACTURE [None]
